FAERS Safety Report 9482783 (Version 1)
Quarter: 2013Q3

REPORT INFORMATION
  Report Type: Spontaneous
  Country: US (occurrence: US)
  Receive Date: 20130828
  Receipt Date: 20130828
  Transmission Date: 20140515
  Serious: Yes (Other)
  Sender: FDA-Public Use
  Company Number: US-PFIZER INC-2013247272

PATIENT
  Age: 21 Year
  Sex: Male
  Weight: 81.63 kg

DRUGS (7)
  1. LYRICA [Suspect]
     Indication: BACK PAIN
     Dosage: 150 MG, 2X/DAY
     Route: 048
     Dates: start: 2012, end: 201308
  2. LYRICA [Suspect]
     Indication: GAIT DISTURBANCE
  3. LYRICA [Suspect]
     Indication: GAIT DISTURBANCE
  4. LYRICA [Suspect]
     Indication: BACK DISORDER
  5. LYRICA [Suspect]
     Indication: LIMB DISCOMFORT
  6. LYRICA [Suspect]
     Indication: HYPOKINESIA
  7. MELOXICAM [Concomitant]
     Dosage: UNK

REACTIONS (3)
  - Activities of daily living impaired [Not Recovered/Not Resolved]
  - Gait disturbance [Not Recovered/Not Resolved]
  - Malaise [Not Recovered/Not Resolved]
